FAERS Safety Report 4727624-6 (Version None)
Quarter: 2005Q3

REPORT INFORMATION
  Report Type: 
  Country: None (occurrence: None)
  Receive Date: 20050727
  Receipt Date: 20050727
  Transmission Date: 20060218
  Serious: Yes (Hospitalization)
  Sender: FDA-Public Use
  Company Number: None

PATIENT
  Age: 57 Year
  Sex: Male

DRUGS (10)
  1. COLISTIMETHATE [Suspect]
     Indication: INFECTION
     Dosage: 150 MG IV Q 12 H
     Route: 042
     Dates: start: 20050512, end: 20050524
  2. COLISTIMETHATE [Suspect]
     Indication: PATHOGEN RESISTANCE
     Dosage: 150 MG IV Q 12 H
     Route: 042
     Dates: start: 20050512, end: 20050524
  3. NITROGLYCERIN [Concomitant]
  4. METOPROLOL [Concomitant]
  5. FUROSEMIDE [Concomitant]
  6. FOLIC ACID [Concomitant]
  7. ASPIRIN [Concomitant]
  8. OXYCODONE [Concomitant]
  9. FENTANYL [Concomitant]
  10. ALPRAZOLAM [Concomitant]

REACTIONS (3)
  - INFECTION [None]
  - PATHOGEN RESISTANCE [None]
  - RENAL FAILURE [None]
